FAERS Safety Report 14661748 (Version 2)
Quarter: 2018Q2

REPORT INFORMATION
  Report Type: Spontaneous
  Country: US (occurrence: US)
  Receive Date: 20180320
  Receipt Date: 20180426
  Transmission Date: 20180711
  Serious: Yes (Hospitalization, Other)
  Sender: FDA-Public Use
  Company Number: US-ALLERGAN-1811603US

PATIENT
  Age: 85 Year
  Sex: Female

DRUGS (2)
  1. GELNIQUE [Suspect]
     Active Substance: OXYBUTYNIN
     Indication: BLADDER DISORDER
     Dosage: UNK
     Route: 061
  2. BEN GAY [Concomitant]
     Dosage: UNK
     Route: 061

REACTIONS (9)
  - Oedema peripheral [Unknown]
  - Appendix disorder [Recovered/Resolved]
  - Inappropriate schedule of drug administration [Unknown]
  - Vision blurred [Recovered/Resolved]
  - Eye haemorrhage [Recovered/Resolved]
  - Retinal disorder [Unknown]
  - Erythropsia [Recovered/Resolved]
  - Product administered at inappropriate site [Unknown]
  - Retinal disorder [Not Recovered/Not Resolved]

NARRATIVE: CASE EVENT DATE: 2018
